FAERS Safety Report 4988427-0 (Version None)
Quarter: 2006Q2

REPORT INFORMATION
  Report Type: 
  Country: None (occurrence: None)
  Receive Date: 20060502
  Receipt Date: 20060420
  Transmission Date: 20061013
  Serious: Yes (Other)
  Sender: FDA-Public Use
  Company Number: US-BRISTOL-MYERS SQUIBB COMPANY-13353891

PATIENT

DRUGS (1)
  1. AVAPRO [Suspect]
     Indication: HYPERTENSION
     Dates: start: 20060317, end: 20060402

REACTIONS (2)
  - MYALGIA [None]
  - TREMOR [None]
